FAERS Safety Report 5205748-7 (Version None)
Quarter: 2007Q1

REPORT INFORMATION
  Report Type: 
  Country: None (occurrence: None)
  Receive Date: 20070108
  Receipt Date: 20070108
  Transmission Date: 20070707
  Serious: Yes (Life-Threatening)
  Sender: FDA-Public Use
  Company Number: None

PATIENT
  Sex: Female
  Weight: 79.3795 kg

DRUGS (2)
  1. METOPROLOL SUCCINATE [Suspect]
     Indication: CARDIAC OUTPUT
     Dosage: 25MG BID PO 10 -1/2 DOSES
     Route: 048
     Dates: start: 20061220, end: 20061230
  2. METOPROLOL SUCCINATE [Suspect]
     Indication: HYPERTENSION
     Dosage: 25MG BID PO 10 -1/2 DOSES
     Route: 048
     Dates: start: 20061220, end: 20061230

REACTIONS (10)
  - ASTHENIA [None]
  - CHEST DISCOMFORT [None]
  - CONDITION AGGRAVATED [None]
  - ILL-DEFINED DISORDER [None]
  - MUSCLE SPASMS [None]
  - PAIN IN EXTREMITY [None]
  - PALPITATIONS [None]
  - PARKINSON'S DISEASE [None]
  - POOR QUALITY DRUG ADMINISTERED [None]
  - THERAPEUTIC PRODUCT CONTAMINATION [None]
